FAERS Safety Report 11356914 (Version 1)
Quarter: 2015Q3

REPORT INFORMATION
  Report Type: Spontaneous
  Country: US (occurrence: US)
  Receive Date: 20150803
  Receipt Date: 20150803
  Transmission Date: 20151125
  Serious: No
  Sender: FDA-Public Use
  Company Number: US-ELI_LILLY_AND_COMPANY-US201303002097

PATIENT
  Age: 21 Year
  Sex: Male

DRUGS (1)
  1. STRATTERA [Suspect]
     Active Substance: ATOMOXETINE HYDROCHLORIDE
     Dosage: 80 MG, QD
     Dates: start: 20130219

REACTIONS (4)
  - Headache [Unknown]
  - Abdominal pain upper [Unknown]
  - Migraine [Unknown]
  - Chest pain [Unknown]
